FAERS Safety Report 23890077 (Version 1)
Quarter: 2024Q2

REPORT INFORMATION
  Report Type: Report from Study
  Country: BR (occurrence: BR)
  Receive Date: 20240523
  Receipt Date: 20240523
  Transmission Date: 20240716
  Serious: Yes (Other)
  Sender: FDA-Public Use
  Company Number: BR-MYLANLABS-2024M1042905

PATIENT
  Age: 64 Year
  Sex: Female
  Weight: 84.4 kg

DRUGS (2)
  1. XALATAN [Suspect]
     Active Substance: LATANOPROST
     Indication: Glaucoma
     Dosage: 1 GTT DROPS, QD (PM) (DAILY)
     Route: 047
     Dates: start: 2004
  2. XALATAN [Suspect]
     Active Substance: LATANOPROST
     Dosage: 1 GTT DROPS, QD (PM) (DAILY)
     Route: 047
     Dates: start: 2004

REACTIONS (2)
  - Diabetes mellitus [Not Recovered/Not Resolved]
  - Hypertension [Not Recovered/Not Resolved]

NARRATIVE: CASE EVENT DATE: 20240315
